FAERS Safety Report 4263869-X (Version None)
Quarter: 2004Q1

REPORT INFORMATION
  Report Type: 
  Country: None (occurrence: None)
  Receive Date: 20040102
  Receipt Date: 20031216
  Transmission Date: 20041129
  Serious: Yes (Death, Life-Threatening, Disabling)
  Sender: FDA-Public Use
  Company Number: JP_031202389

PATIENT
  Age: 88 Year
  Sex: Female
  Weight: 37 kg

DRUGS (17)
  1. VANCOMYCIN HYDROCHLORIDE [Suspect]
     Indication: PNEUMONIA STAPHYLOCOCCAL
     Dosage: 500 MG/2 DAY
     Dates: start: 20021022, end: 20021026
  2. SOLDEM 3A [Concomitant]
  3. ALTAT (ROXATIDINE ACETATE HYDROCHLORIDE) [Concomitant]
  4. NOVOLIN R [Concomitant]
  5. DIFLUCAN [Concomitant]
  6. APO-LOPERAMIDE (LOPERAMIDE HYDROCHLORIDE) [Concomitant]
  7. POLYCARBOPHIL CALCIUM [Concomitant]
  8. LAC B (LACTOBACILLUS BIFIDUS, LYOPHILIZED) [Concomitant]
  9. CAPISTEN (KETOPROFEN) [Concomitant]
  10. CEFOPERAZONE SODIUM/SULBACTAM SODIUM) [Concomitant]
  11. INOVAN (DOPAMINE HYDROCHLORIDE) [Concomitant]
  12. AMINOTRIPA 1 [Concomitant]
  13. MINERALIN [Concomitant]
  14. VITAMIN CAP [Concomitant]
  15. KCL (POTASSIUM CHLORIDE) [Concomitant]
  16. INTRALIPID [Concomitant]
  17. LASIX [Concomitant]

REACTIONS (4)
  - BLOOD CREATININE INCREASED [None]
  - BLOOD UREA INCREASED [None]
  - DISSEMINATED INTRAVASCULAR COAGULATION [None]
  - SHOCK [None]
